FAERS Safety Report 13192894 (Version 2)
Quarter: 2017Q1

REPORT INFORMATION
  Report Type: Spontaneous
  Country: DE (occurrence: DE)
  Receive Date: 20170207
  Receipt Date: 20170223
  Transmission Date: 20170428
  Serious: No
  Sender: FDA-Public Use
  Company Number: DE-PFIZER INC-2017043962

PATIENT
  Age: 75 Year
  Sex: Female

DRUGS (1)
  1. LATANOPROST PFIZER [Suspect]
     Active Substance: LATANOPROST
     Indication: INTRAOCULAR PRESSURE INCREASED
     Dosage: UNK

REACTIONS (2)
  - Back pain [Unknown]
  - Abdominal pain lower [Unknown]
